FAERS Safety Report 5228040-3 (Version None)
Quarter: 2007Q1

REPORT INFORMATION
  Report Type: 
  Country: None (occurrence: None)
  Receive Date: 20061201
  Receipt Date: 20050119
  Transmission Date: 20070707
  Serious: No
  Sender: FDA-Public Use
  Company Number: 2005UW00995

PATIENT
  Age: 8 Month
  Sex: Female
  Weight: 1.7 kg

DRUGS (9)
  1. MERREM [Suspect]
     Indication: BLOOD CULTURE POSITIVE
     Dosage: 20 MG/KG Q8H IV
     Route: 042
     Dates: start: 20041208
  2. MERREM [Suspect]
     Indication: ENTEROBACTER INFECTION
     Dosage: 20 MG/KG Q8H IV
     Route: 042
     Dates: start: 20041208
  3. MERREM [Suspect]
     Indication: SPUTUM CULTURE POSITIVE
     Dosage: 20 MG/KG Q8H IV
     Route: 042
     Dates: start: 20041208
  4. MERREM [Suspect]
     Indication: BLOOD CULTURE POSITIVE
     Dosage: 20 MG/KG Q12H IV
     Route: 042
     Dates: end: 20050110
  5. MERREM [Suspect]
     Indication: ENTEROBACTER INFECTION
     Dosage: 20 MG/KG Q12H IV
     Route: 042
     Dates: end: 20050110
  6. GENTAMICIN [Concomitant]
  7. TIMENTIN [Concomitant]
  8. ERYTHROMYCIN [Concomitant]
  9. ZANTAC [Concomitant]

REACTIONS (2)
  - APNOEA [None]
  - BRADYCARDIA [None]
